FAERS Safety Report 25345243 (Version 3)
Quarter: 2025Q2

REPORT INFORMATION
  Report Type: Spontaneous
  Country: JP (occurrence: JP)
  Receive Date: 20250522
  Receipt Date: 20250611
  Transmission Date: 20250717
  Serious: Yes (Hospitalization, Other)
  Sender: SANOFI AVENTIS
  Company Number: JP-MEIJISEIKA-202502971_P_1

PATIENT
  Age: 7 Decade
  Sex: Male

DRUGS (1)
  1. REZUROCK [Suspect]
     Active Substance: BELUMOSUDIL
     Dosage: 200 MG, QD
     Route: 048

REACTIONS (3)
  - Graft versus host disease in lung [Recovering/Resolving]
  - Pneumonia [Recovered/Resolved]
  - Malaise [Recovered/Resolved]
